FAERS Safety Report 13236411 (Version 1)
Quarter: 2017Q1

REPORT INFORMATION
  Report Type: Spontaneous
  Country: FI (occurrence: FI)
  Receive Date: 20170215
  Receipt Date: 20170215
  Transmission Date: 20170428
  Serious: Yes (Life-Threatening, Hospitalization, Other)
  Sender: FDA-Public Use
  Company Number: FI-TEVA-736793ISR

PATIENT
  Age: 87 Year
  Sex: Female

DRUGS (5)
  1. EXELON PATCH [Suspect]
     Active Substance: RIVASTIGMINE
     Indication: DEMENTIA ALZHEIMER^S TYPE
     Dosage: 4.6 MILLIGRAM DAILY;
     Route: 062
     Dates: start: 2008
  2. EBIXA [Concomitant]
     Active Substance: MEMANTINE HYDROCHLORIDE
  3. KLEXANE [Concomitant]
     Active Substance: ENOXAPARIN
     Dates: start: 201611, end: 201612
  4. RISEDRONAT TEVA 35 MG [Suspect]
     Active Substance: RISEDRONATE SODIUM
     Dosage: 5 MILLIGRAM DAILY; USED 4 TIMES IN NOV-DEC 2016
     Dates: start: 2016
  5. KETIPINOR [Concomitant]
     Active Substance: QUETIAPINE FUMARATE

REACTIONS (16)
  - Chest pain [Recovered/Resolved]
  - Pharyngitis [Recovered/Resolved]
  - Hypoaesthesia oral [Recovered/Resolved]
  - Paraesthesia oral [Recovered/Resolved]
  - Oesophagitis [Recovered/Resolved]
  - Aphasia [Recovered/Resolved]
  - Oral pain [Recovered/Resolved]
  - Pulmonary embolism [Recovered/Resolved]
  - Dysarthria [Recovered/Resolved]
  - Obstructive airways disorder [Recovered/Resolved]
  - Dysphagia [Recovered/Resolved]
  - Transient ischaemic attack [Recovered/Resolved]
  - Candida infection [Recovered/Resolved]
  - Oropharyngeal pain [Recovered/Resolved]
  - Secretion discharge [Recovered/Resolved]
  - Dyspnoea [Recovered/Resolved]

NARRATIVE: CASE EVENT DATE: 2016
